FAERS Safety Report 24076834 (Version 1)
Quarter: 2024Q3

REPORT INFORMATION
  Report Type: Spontaneous
  Country: NO (occurrence: NO)
  Receive Date: 20240711
  Receipt Date: 20240711
  Transmission Date: 20241017
  Serious: Yes (Other)
  Sender: ORGANON
  Company Number: None

PATIENT
  Age: 44 Year
  Sex: Male
  Weight: 86 kg

DRUGS (1)
  1. NASONEX [Suspect]
     Active Substance: MOMETASONE FUROATE
     Indication: Mite allergy
     Dosage: 12 HOURS
     Route: 045
     Dates: start: 1993, end: 202308

REACTIONS (1)
  - Retinal oedema [Recovering/Resolving]

NARRATIVE: CASE EVENT DATE: 20230501
